FAERS Safety Report 20691892 (Version 2)
Quarter: 2022Q2

REPORT INFORMATION
  Report Type: Spontaneous
  Country: HK (occurrence: HK)
  Receive Date: 20220408
  Receipt Date: 20220422
  Transmission Date: 20220721
  Serious: Yes (Death, Life-Threatening, Hospitalization, Other)
  Sender: FDA-Public Use
  Company Number: HK-009507513-2204HKG002411

PATIENT
  Age: 82 Year
  Sex: Male

DRUGS (2)
  1. PEMBROLIZUMAB [Suspect]
     Active Substance: PEMBROLIZUMAB
     Indication: Tongue neoplasm malignant stage unspecified
     Dosage: 200 MILLIGRAM, Q3W
     Route: 042
     Dates: start: 20220307
  2. ACETAMINOPHEN [Concomitant]
     Active Substance: ACETAMINOPHEN

REACTIONS (7)
  - Toxic epidermal necrolysis [Fatal]
  - Rash maculo-papular [Fatal]
  - Toxic skin eruption [Fatal]
  - Nikolsky^s sign [Fatal]
  - Pneumonia [Fatal]
  - Sepsis [Fatal]
  - Decreased immune responsiveness [Unknown]

NARRATIVE: CASE EVENT DATE: 20220301
